FAERS Safety Report 9848059 (Version 1)
Quarter: 2013Q4

REPORT INFORMATION
  Report Type: Spontaneous
  Country: US (occurrence: None)
  Receive Date: 20131226
  Receipt Date: 20131226
  Transmission Date: 20140711
  Serious: Yes (Other)
  Sender: FDA-Public Use
  Company Number: PHEH2013US014696

PATIENT
  Age: 72 Year
  Sex: Female

DRUGS (3)
  1. TEKTURNA HCT [Suspect]
     Indication: HYPERTENSION
     Dosage: 1 DF, QD (ALIS 300 MG / HCT 25 MG), ORAL
     Route: 048
  2. VIT. E (TOCOPHEROL) [Concomitant]
  3. VIT B12 [Concomitant]

REACTIONS (1)
  - Blood pressure increased [None]
